FAERS Safety Report 20621289 (Version 1)
Quarter: 2022Q1

REPORT INFORMATION
  Report Type: Spontaneous
  Country: US (occurrence: US)
  Receive Date: 20220322
  Receipt Date: 20220322
  Transmission Date: 20220423
  Serious: Yes (Other)
  Sender: FDA-Public Use
  Company Number: US-PFIZER INC-202200387061

PATIENT
  Age: 23 Year
  Sex: Female

DRUGS (8)
  1. PRAZOSIN HYDROCHLORIDE [Suspect]
     Active Substance: PRAZOSIN HYDROCHLORIDE
     Indication: Agitation
     Dosage: 2 MG, DAILY
  2. PRAZOSIN HYDROCHLORIDE [Suspect]
     Active Substance: PRAZOSIN HYDROCHLORIDE
     Indication: Suicidal ideation
  3. FLUOXETINE [Suspect]
     Active Substance: FLUOXETINE HYDROCHLORIDE
     Indication: Agitation
     Dosage: 60 MG, DAILY
  4. FLUOXETINE [Suspect]
     Active Substance: FLUOXETINE HYDROCHLORIDE
     Indication: Suicidal ideation
  5. PERPHENAZINE [Suspect]
     Active Substance: PERPHENAZINE
     Indication: Agitation
     Dosage: 8 MG, 2X/DAY
  6. PERPHENAZINE [Suspect]
     Active Substance: PERPHENAZINE
     Indication: Suicidal ideation
  7. DIVALPROEX SODIUM [Suspect]
     Active Substance: DIVALPROEX SODIUM
     Indication: Agitation
     Dosage: 500 MG, 2X/DAY
  8. DIVALPROEX SODIUM [Suspect]
     Active Substance: DIVALPROEX SODIUM
     Indication: Suicidal ideation

REACTIONS (3)
  - Off label use [Unknown]
  - Hyperprolactinaemia [Unknown]
  - Extrapyramidal disorder [Unknown]
